FAERS Safety Report 8895575 (Version 2)
Quarter: 2012Q4

REPORT INFORMATION
  Report Type: Report from Study
  Country: JP (occurrence: JP)
  Receive Date: 20121108
  Receipt Date: 20121228
  Transmission Date: 20130627
  Serious: Yes (Hospitalization)
  Sender: FDA-Public Use
  Company Number: JP-GLAXOSMITHKLINE-B0842332A

PATIENT
  Age: 22 Year
  Sex: Male
  Weight: 53 kg

DRUGS (16)
  1. PAXIL [Suspect]
     Indication: SOCIAL PHOBIA
     Dosage: 5MG Per day
     Route: 048
     Dates: start: 20100601
  2. PAXIL [Suspect]
     Indication: SOCIAL PHOBIA
     Dosage: 10MG Per day
     Route: 048
     Dates: start: 20100723
  3. PAXIL [Suspect]
     Indication: SOCIAL PHOBIA
     Dosage: 20MG Per day
     Route: 048
     Dates: start: 20100820
  4. PAXIL [Suspect]
     Indication: SOCIAL PHOBIA
     Dosage: 30MG Per day
     Route: 048
     Dates: start: 20100903
  5. PAXIL [Suspect]
     Indication: SOCIAL PHOBIA
     Dosage: 40MG Per day
     Route: 048
     Dates: start: 20101007
  6. PAXIL [Suspect]
     Indication: SOCIAL PHOBIA
     Dosage: 30MG Per day
     Route: 048
     Dates: start: 20101108
  7. PAXIL [Suspect]
     Indication: SOCIAL PHOBIA
     Dosage: 10MG Per day
     Route: 048
     Dates: start: 20101119, end: 20120111
  8. MEILAX [Concomitant]
     Indication: SOCIAL PHOBIA
     Route: 048
     Dates: start: 20100601
  9. RISPERDAL [Concomitant]
     Indication: SOCIAL PHOBIA
     Route: 048
     Dates: start: 20100805, end: 20100826
  10. RISPERDAL [Concomitant]
     Indication: SOCIAL PHOBIA
     Route: 048
     Dates: start: 20100827, end: 20101028
  11. RISPERDAL [Concomitant]
     Indication: SOCIAL PHOBIA
     Route: 048
     Dates: start: 20101029
  12. MIRTAZAPINE [Concomitant]
     Indication: SOCIAL PHOBIA
     Route: 048
     Dates: start: 20101108, end: 20101118
  13. MIRTAZAPINE [Concomitant]
     Indication: SOCIAL PHOBIA
     Route: 048
     Dates: start: 20101119, end: 20101226
  14. MIRTAZAPINE [Concomitant]
     Indication: SOCIAL PHOBIA
     Route: 048
     Dates: start: 20101227, end: 20110103
  15. MIRTAZAPINE [Concomitant]
     Indication: SOCIAL PHOBIA
     Route: 048
     Dates: start: 20110104
  16. RONFLEMAN [Concomitant]
     Route: 048
     Dates: start: 20100903

REACTIONS (2)
  - Intentional overdose [Recovered/Resolved]
  - Pneumonia aspiration [Recovered/Resolved]
